FAERS Safety Report 19072794 (Version 2)
Quarter: 2021Q2

REPORT INFORMATION
  Report Type: Spontaneous
  Country: JP (occurrence: JP)
  Receive Date: 20210330
  Receipt Date: 20210506
  Transmission Date: 20210717
  Serious: Yes (Other)
  Sender: FDA-Public Use
  Company Number: JP-ORION CORPORATION ORION PHARMA-ENTC2021-0080

PATIENT
  Age: 83 Year
  Sex: Female

DRUGS (1)
  1. STALEVO [Suspect]
     Active Substance: CARBIDOPA\ENTACAPONE\LEVODOPA
     Indication: PARKINSON^S DISEASE
     Route: 048

REACTIONS (1)
  - Parkinson^s disease [Not Recovered/Not Resolved]
